FAERS Safety Report 20258153 (Version 1)
Quarter: 2021Q4

REPORT INFORMATION
  Report Type: Spontaneous
  Country: DE (occurrence: DE)
  Receive Date: 20211230
  Receipt Date: 20211230
  Transmission Date: 20220303
  Serious: Yes (Hospitalization, Other)
  Sender: FDA-Public Use
  Company Number: DE-ADRED-07441-01

PATIENT
  Age: 80 Year
  Sex: Male

DRUGS (10)
  1. TORSEMIDE [Suspect]
     Active Substance: TORSEMIDE
     Indication: Product used for unknown indication
     Dosage: 10 MILLIGRAM, QD (10 MG, 1-0-0-0)
  2. CLOPIDOGREL [Suspect]
     Active Substance: CLOPIDOGREL BISULFATE
     Indication: Product used for unknown indication
     Dosage: 75 MILLIGRAM (75 MG, PAUSE)
  3. EPLERENONE [Suspect]
     Active Substance: EPLERENONE
     Indication: Product used for unknown indication
     Dosage: 25 MILLIGRAM, QD (25 MG, 1-0-0-0)
  4. HYDROCHLOROTHIAZIDE\VALSARTAN [Suspect]
     Active Substance: HYDROCHLOROTHIAZIDE\VALSARTAN
     Indication: Product used for unknown indication
     Dosage: UNK, QD (25|160 MG, 1-0-0-0)
  5. EDOXABAN [Suspect]
     Active Substance: EDOXABAN
     Indication: Product used for unknown indication
     Dosage: 30 MILLIGRAM, QD (30 MG, 1-0-0-0)
  6. ATORVASTATIN [Concomitant]
     Active Substance: ATORVASTATIN
     Dosage: 40 MILLIGRAM, QD (40 MG, 0-0-1-0)
  7. RANOLAZINE [Concomitant]
     Active Substance: RANOLAZINE
     Dosage: 375 MILLIGRAM, BID (375 MG, 1-0-1-0)
  8. FEBUXOSTAT [Concomitant]
     Active Substance: FEBUXOSTAT
     Dosage: 80 MILLIGRAM, QD (80 MG, 1-0-0-0)
  9. BISOPROLOL [Concomitant]
     Active Substance: BISOPROLOL
     Dosage: 5 MILLIGRAM, QD (5 MG, 1-0-0-0)
  10. FLUTICASONE FUROATE\VILANTEROL TRIFENATATE [Concomitant]
     Active Substance: FLUTICASONE FUROATE\VILANTEROL TRIFENATATE
     Dosage: UNK, QD (22|92 MCG, 1-0-0-0 )

REACTIONS (13)
  - Abdominal pain [Unknown]
  - Oedema peripheral [Unknown]
  - Renal failure [Unknown]
  - Nausea [Unknown]
  - Dehydration [Unknown]
  - Atrial fibrillation [Unknown]
  - Renal impairment [Unknown]
  - Dysuria [Unknown]
  - Anaemia [Unknown]
  - Weight increased [Unknown]
  - Epistaxis [Unknown]
  - General physical health deterioration [Unknown]
  - Respiratory tract haemorrhage [Unknown]
